FAERS Safety Report 8185562-3 (Version None)
Quarter: 2012Q1

REPORT INFORMATION
  Report Type: 
  Country: None (occurrence: None)
  Receive Date: 20120305
  Receipt Date: 20120223
  Transmission Date: 20120608
  Serious: Yes (Other)
  Sender: FDA-Public Use
  Company Number: PHHY2012BR016055

PATIENT
  Sex: Male
  Weight: 100 kg

DRUGS (2)
  1. RITALIN LA [Suspect]
     Dosage: 2 DF, QD
  2. RITALIN LA [Suspect]
     Indication: ATTENTION DEFICIT/HYPERACTIVITY DISORDER
     Dosage: 1 DF, QD
     Route: 048

REACTIONS (7)
  - MOVEMENT DISORDER [None]
  - ANXIETY [None]
  - CRYING [None]
  - DRUG INEFFECTIVE [None]
  - SUICIDAL IDEATION [None]
  - MALAISE [None]
  - INSOMNIA [None]
